FAERS Safety Report 24537670 (Version 1)
Quarter: 2024Q4

REPORT INFORMATION
  Report Type: Spontaneous
  Country: US (occurrence: US)
  Receive Date: 20241023
  Receipt Date: 20241023
  Transmission Date: 20250115
  Serious: Yes (Other)
  Sender: AUROBINDO
  Company Number: US-AUROBINDO-AUR-APL-2024-051873

PATIENT
  Age: 4 Week
  Sex: Male

DRUGS (4)
  1. NIFEDIPINE [Suspect]
     Active Substance: NIFEDIPINE
     Indication: Type 2 diabetes mellitus
     Dosage: UNK
     Route: 064
  2. INSULIN NOS [Suspect]
     Active Substance: INSULIN NOS
     Indication: Type 2 diabetes mellitus
     Dosage: UNK
     Route: 064
  3. LABETALOL [Suspect]
     Active Substance: LABETALOL
     Indication: Type 2 diabetes mellitus
     Dosage: UNK
     Route: 064
  4. SEMAGLUTIDE [Suspect]
     Active Substance: SEMAGLUTIDE
     Indication: Type 2 diabetes mellitus
     Dosage: UNK
     Route: 064

REACTIONS (5)
  - Leukopenia [Unknown]
  - Thrombocytopenia [Unknown]
  - Anaemia [Unknown]
  - Osteopetrosis [Unknown]
  - Foetal exposure during pregnancy [Unknown]
